FAERS Safety Report 4308462-5 (Version None)
Quarter: 2004Q1

REPORT INFORMATION
  Report Type: 
  Country: None (occurrence: None)
  Receive Date: 20040301
  Receipt Date: 20040219
  Transmission Date: 20041129
  Serious: Yes (Death)
  Sender: FDA-Public Use
  Company Number: JP-ROCHE-359192

PATIENT
  Age: 89 Year
  Sex: Male

DRUGS (6)
  1. TAMIFLU [Suspect]
     Route: 048
     Dates: start: 20040125, end: 20040129
  2. RENIVACE [Concomitant]
  3. NORVASC [Concomitant]
  4. SELBEX [Concomitant]
  5. JUVELA N [Concomitant]
  6. RHYTHMY [Concomitant]

REACTIONS (2)
  - PNEUMONIA [None]
  - RENAL FAILURE ACUTE [None]
